FAERS Safety Report 7277177-6 (Version None)
Quarter: 2011Q1

REPORT INFORMATION
  Report Type: 
  Country: None (occurrence: None)
  Receive Date: 20110202
  Receipt Date: 20110202
  Transmission Date: 20110831
  Serious: Yes (Hospitalization)
  Sender: FDA-Public Use
  Company Number: None

PATIENT
  Sex: Female
  Weight: 73.9 kg

DRUGS (2)
  1. CARBOPLATIN [Suspect]
     Dosage: 344 MG
  2. TAXOL [Suspect]
     Dosage: 297 MG

REACTIONS (5)
  - THROMBOCYTOPENIA [None]
  - HAEMATOCHEZIA [None]
  - PROTEUS TEST POSITIVE [None]
  - ANAEMIA [None]
  - NEUTROPENIA [None]
